FAERS Safety Report 15311312 (Version 1)
Quarter: 2018Q3

REPORT INFORMATION
  Report Type: Spontaneous
  Country: US (occurrence: US)
  Receive Date: 20180814
  Receipt Date: 20180814
  Transmission Date: 20181010
  Serious: No
  Sender: FDA-Public Use
  Company Number: None

PATIENT
  Age: 73 Year
  Sex: Female
  Weight: 47.25 kg

DRUGS (15)
  1. TRAVATAN [Concomitant]
     Active Substance: TRAVOPROST
  2. PREMARIN [Concomitant]
     Active Substance: ESTROGENS, CONJUGATED
  3. PREVACID [Concomitant]
     Active Substance: LANSOPRAZOLE
  4. SIMBRINZA [Concomitant]
     Active Substance: BRIMONIDINE TARTRATE\BRINZOLAMIDE
  5. PROLIA [Concomitant]
     Active Substance: DENOSUMAB
  6. TRAMADOL. [Concomitant]
     Active Substance: TRAMADOL
  7. RALOXIFENE. [Concomitant]
     Active Substance: RALOXIFENE
  8. GINGER. [Concomitant]
     Active Substance: GINGER
  9. TYLENOL [Concomitant]
     Active Substance: ACETAMINOPHEN
  10. VITAMIN D [Concomitant]
     Active Substance: CHOLECALCIFEROL
  11. CALCIUM [Concomitant]
     Active Substance: CALCIUM
  12. SIMVASTATIN. [Suspect]
     Active Substance: SIMVASTATIN
     Indication: BLOOD CHOLESTEROL INCREASED
     Dosage: ?          QUANTITY:1 TABLET(S);?
     Route: 048
     Dates: start: 20180501, end: 20180703
  13. DOMPERIDONE [Concomitant]
     Active Substance: DOMPERIDONE
  14. OMEGA 3 [Concomitant]
     Active Substance: OMEGA-3 FATTY ACIDS
  15. COLLAGEN [Concomitant]
     Active Substance: COLLAGEN

REACTIONS (6)
  - Middle insomnia [None]
  - Memory impairment [None]
  - Sleep disorder [None]
  - Drug ineffective [None]
  - Pain in extremity [None]
  - Back pain [None]

NARRATIVE: CASE EVENT DATE: 20180715
